FAERS Safety Report 25144415 (Version 1)
Quarter: 2025Q2

REPORT INFORMATION
  Report Type: Spontaneous
  Country: US (occurrence: US)
  Receive Date: 20250401
  Receipt Date: 20250401
  Transmission Date: 20250717
  Serious: Yes (Life-Threatening, Hospitalization)
  Sender: MYLAN
  Company Number: US-MYLANLABS-2025M1026266

PATIENT
  Age: 32 Year
  Sex: Female

DRUGS (2)
  1. PROPRANOLOL HYDROCHLORIDE [Suspect]
     Active Substance: PROPRANOLOL HYDROCHLORIDE
     Indication: Anxiety
  2. BUPROPION [Suspect]
     Active Substance: BUPROPION
     Indication: Depression

REACTIONS (8)
  - Cardiogenic shock [Recovering/Resolving]
  - Ventricular tachycardia [Recovering/Resolving]
  - Cardiac arrest [Recovering/Resolving]
  - Respiratory failure [Recovering/Resolving]
  - Toxicity to various agents [Recovering/Resolving]
  - Intentional overdose [Recovering/Resolving]
  - Unresponsive to stimuli [Recovering/Resolving]
  - Off label use [Unknown]
